FAERS Safety Report 13264414 (Version 1)
Quarter: 2017Q1

REPORT INFORMATION
  Report Type: Spontaneous
  Country: US (occurrence: US)
  Receive Date: 20170223
  Receipt Date: 20170223
  Transmission Date: 20170428
  Serious: Yes (Other)
  Sender: FDA-Public Use
  Company Number: US-MYLANLABS-2017M1009861

PATIENT

DRUGS (1)
  1. WARFARIN [Suspect]
     Active Substance: WARFARIN
     Indication: PROTEIN C DEFICIENCY
     Route: 065

REACTIONS (4)
  - Skin necrosis [Unknown]
  - Nervous system disorder [Unknown]
  - Haemorrhage [Unknown]
  - Deep vein thrombosis [Unknown]
